FAERS Safety Report 8963784 (Version 1)
Quarter: 2012Q4

REPORT INFORMATION
  Report Type: 
  Country: FR (occurrence: FR)
  Receive Date: 20121214
  Receipt Date: 20121214
  Transmission Date: 20130627
  Serious: Yes (Hospitalization)
  Sender: FDA-Public Use
  Company Number: FR-009507513-1212FRA002757

PATIENT
  Age: 81 Year
  Sex: Male

DRUGS (5)
  1. NORSET [Suspect]
     Indication: DEPRESSION
     Dosage: 15 mg, qd
     Route: 048
     Dates: end: 20121007
  2. NORSET [Suspect]
     Dosage: 30 mg, qd
     Dates: start: 20121008, end: 20121015
  3. NORSET [Suspect]
     Dosage: 15 mg, qd
     Dates: start: 20121016
  4. BACTRIM FORTE [Suspect]
     Indication: OSTEITIS
     Dosage: 4 DF, qd
     Route: 048
     Dates: start: 20121013, end: 20121019
  5. BACTRIM FORTE [Suspect]
     Indication: CELLULITIS STAPHYLOCOCCAL

REACTIONS (2)
  - Hypoglycaemia [Recovering/Resolving]
  - Tremor [Recovered/Resolved]
